FAERS Safety Report 8191015 (Version 2)
Quarter: 2012Q4

REPORT INFORMATION
  Report Type: Report from Study
  Country: JP (occurrence: JP)
  Receive Date: 20111020
  Receipt Date: 20120907
  Transmission Date: 20130627
  Serious: Yes (Death, Other)
  Sender: FDA-Public Use
  Company Number: JP-PFIZER INC-2011198253

PATIENT
  Age: 59 Year
  Sex: Male
  Weight: 56.9 kg

DRUGS (11)
  1. TEMSIROLIMUS [Suspect]
     Indication: RENAL CELL CARCINOMA
     Dosage: 25 mg, UNK
     Dates: start: 20110215
  2. POLARAMINE [Concomitant]
     Indication: PROPHYLAXIS
     Dosage: 5 mg, 1x/day
     Route: 042
  3. DECADRON [Concomitant]
     Dosage: 1 mg, 1x/day
     Route: 048
  4. OXYCONTIN [Concomitant]
     Indication: RENAL CELL CARCINOMA
     Dosage: 4 mg, 2x/day
     Route: 048
  5. OXINORM [Concomitant]
     Indication: RENAL CELL CARCINOMA
     Dosage: 10 mg, 1x/day
     Route: 048
  6. ACINON [Concomitant]
     Indication: PROPHYLAXIS
     Dosage: 150 mg, 2x/day
     Route: 048
  7. GASMOTIN [Concomitant]
     Indication: PROPHYLAXIS
     Dosage: 5 mg, 2x/day
     Route: 048
  8. LOPEMIN [Concomitant]
     Indication: PROPHYLAXIS
     Dosage: 1 mg, 3x/day
     Route: 048
     Dates: start: 20110215
  9. RESTAMIN [Concomitant]
     Indication: PROPHYLAXIS
     Dosage: 10 mg, 3x/day
     Route: 048
     Dates: start: 20110215
  10. ALLOPURINOL [Concomitant]
     Dosage: 100 mg, 3x/day
     Route: 048
  11. SELBEX [Concomitant]
     Indication: PROPHYLAXIS
     Dosage: 50 mg, 3x/day
     Route: 048
     Dates: start: 20110215

REACTIONS (3)
  - Disease progression [Fatal]
  - Renal cell carcinoma [Fatal]
  - Interstitial lung disease [Not Recovered/Not Resolved]
